FAERS Safety Report 13862536 (Version 1)
Quarter: 2017Q3

REPORT INFORMATION
  Report Type: Spontaneous
  Country: AT (occurrence: AU)
  Receive Date: 20170814
  Receipt Date: 20170814
  Transmission Date: 20171127
  Serious: Yes (Congenital Anomaly, Other)
  Sender: FDA-Public Use
  Company Number: AU-CONCORDIA PHARMACEUTICALS INC.-GSH201708-004499

PATIENT
  Sex: Female

DRUGS (4)
  1. DIAZEPAM. [Suspect]
     Active Substance: DIAZEPAM
  2. TRANYLCYPROMINE [Suspect]
     Active Substance: TRANYLCYPROMINE
  3. ALPRAZOLAM. [Suspect]
     Active Substance: ALPRAZOLAM
  4. PIMOZIDE. [Suspect]
     Active Substance: PIMOZIDE

REACTIONS (14)
  - Atrioventricular septal defect [Unknown]
  - Deafness neurosensory [Unknown]
  - Dysmorphism [Unknown]
  - Foetal growth restriction [Unknown]
  - Maternal exposure during pregnancy [Unknown]
  - Abdominal distension [Unknown]
  - Craniosynostosis [Unknown]
  - Patent ductus arteriosus [Unknown]
  - Congenital central nervous system anomaly [Unknown]
  - Drug interaction [Unknown]
  - Developmental delay [Unknown]
  - Exposure during breast feeding [Unknown]
  - Hydrocephalus [Unknown]
  - Respiratory distress [Unknown]
